FAERS Safety Report 25620525 (Version 2)
Quarter: 2025Q3

REPORT INFORMATION
  Report Type: Spontaneous
  Country: JP (occurrence: JP)
  Receive Date: 20250730
  Receipt Date: 20250808
  Transmission Date: 20251021
  Serious: Yes (Disabling, Other)
  Sender: SANOFI AVENTIS
  Company Number: JP-SA-2025SA212017

PATIENT
  Age: 55 Year
  Sex: Male

DRUGS (5)
  1. DUPIXENT [Suspect]
     Active Substance: DUPILUMAB
     Indication: Chronic rhinosinusitis with nasal polyps
     Dosage: 300 MG, QOW
     Route: 058
     Dates: start: 20241009, end: 20250530
  2. MONTELUKAST [Concomitant]
     Active Substance: MONTELUKAST
     Indication: Rhinorrhoea
     Dosage: 10 MG, QD
     Route: 065
     Dates: start: 20231225
  3. MONTELUKAST [Concomitant]
     Active Substance: MONTELUKAST
     Indication: Nasal congestion
  4. CARBOCYSTEINE [Concomitant]
     Active Substance: CARBOCYSTEINE
     Indication: Nasal congestion
     Dosage: 250 MG, QD
     Route: 065
     Dates: start: 20231127
  5. CARBOCYSTEINE [Concomitant]
     Active Substance: CARBOCYSTEINE
     Indication: Rhinorrhoea

REACTIONS (4)
  - Cogan^s syndrome [Recovered/Resolved with Sequelae]
  - Deafness neurosensory [Recovered/Resolved with Sequelae]
  - Scleritis [Recovered/Resolved]
  - Ocular hyperaemia [Recovered/Resolved]

NARRATIVE: CASE EVENT DATE: 20250101
